FAERS Safety Report 16381761 (Version 1)
Quarter: 2019Q2

REPORT INFORMATION
  Report Type: Spontaneous
  Country: BR (occurrence: BR)
  Receive Date: 20190603
  Receipt Date: 20190603
  Transmission Date: 20190711
  Serious: Yes (Hospitalization)
  Sender: FDA-Public Use
  Company Number: BR-UCBSA-2019022323

PATIENT
  Age: 1 Year
  Sex: Male
  Weight: 9.8 kg

DRUGS (6)
  1. VIMPAT [Suspect]
     Active Substance: LACOSAMIDE
     Dosage: 7 MILLILITER, 2X/DAY (BID)
     Route: 048
     Dates: end: 20190515
  2. VIMPAT [Suspect]
     Active Substance: LACOSAMIDE
     Dosage: 7 MILLILITER, 2X/DAY (BID)
     Route: 048
     Dates: start: 20190521
  3. VIMPAT [Suspect]
     Active Substance: LACOSAMIDE
     Indication: EPILEPSY
     Dosage: UNK
     Route: 048
     Dates: start: 201901
  4. VIMPAT [Suspect]
     Active Substance: LACOSAMIDE
     Dosage: 7 MILLILITER, 2X/DAY (BID)
     Route: 048
     Dates: start: 20190518, end: 20190520
  5. VALPROATO [Concomitant]
     Active Substance: VALPROATE SODIUM
     Indication: EPILEPSY
     Dosage: 200 MILLILITER, 2X/DAY (BID)
     Route: 048
     Dates: start: 201807
  6. CLOBAZAM. [Concomitant]
     Active Substance: CLOBAZAM
     Indication: EPILEPSY
     Dosage: UNK
     Route: 048
     Dates: start: 201805

REACTIONS (3)
  - Pneumonia [Recovering/Resolving]
  - Bronchospasm [Recovering/Resolving]
  - Off label use [Unknown]

NARRATIVE: CASE EVENT DATE: 201901
